FAERS Safety Report 21054208 (Version 1)
Quarter: 2022Q3

REPORT INFORMATION
  Report Type: Spontaneous
  Country: FR (occurrence: FR)
  Receive Date: 20220707
  Receipt Date: 20220707
  Transmission Date: 20221027
  Serious: Yes (Death, Life-Threatening, Hospitalization, Other)
  Sender: FDA-Public Use
  Company Number: FR-MLMSERVICE-20220621-3623332-2

PATIENT
  Age: 89 Year
  Sex: Male

DRUGS (2)
  1. ACETAMINOPHEN [Suspect]
     Active Substance: ACETAMINOPHEN
     Indication: Pneumonia
     Dosage: UNK
     Route: 048
  2. AMOXICILLIN\CLAVULANIC ACID [Concomitant]
     Active Substance: AMOXICILLIN\CLAVULANIC ACID
     Indication: Pneumonia

REACTIONS (8)
  - Confusional state [Fatal]
  - Multiple organ dysfunction syndrome [Fatal]
  - Medication error [Fatal]
  - Self-medication [Fatal]
  - Generalised bullous fixed drug eruption [Fatal]
  - Septic shock [Fatal]
  - Renal failure [Fatal]
  - Pneumonia [Fatal]
